FAERS Safety Report 22374888 (Version 1)
Quarter: 2023Q2

REPORT INFORMATION
  Report Type: Spontaneous
  Country: US (occurrence: None)
  Receive Date: 20230527
  Receipt Date: 20230527
  Transmission Date: 20230722
  Serious: Yes (Hospitalization, Other)
  Sender: FDA-Public Use
  Company Number: US-Unichem Pharmaceuticals (USA) Inc-UCM202305-000632

PATIENT
  Age: 56 Year
  Sex: Male

DRUGS (1)
  1. PHENYTOIN SODIUM [Suspect]
     Active Substance: PHENYTOIN SODIUM
     Indication: Epilepsy
     Dosage: UNKNOWN

REACTIONS (8)
  - Fall [Unknown]
  - Congenital musculoskeletal disorder of skull [Unknown]
  - Toxicity to various agents [Unknown]
  - Ataxia [Recovering/Resolving]
  - Confusional state [Recovering/Resolving]
  - Disorientation [Recovering/Resolving]
  - Nystagmus [Unknown]
  - Gingival hypertrophy [Unknown]
